FAERS Safety Report 5978449-5 (Version None)
Quarter: 2008Q4

REPORT INFORMATION
  Report Type: 
  Country: None (occurrence: None)
  Receive Date: 20081204
  Receipt Date: 20081126
  Transmission Date: 20090506
  Serious: Yes (Other)
  Sender: FDA-Public Use
  Company Number: AU-JNJFOC-20081001875

PATIENT
  Sex: Female

DRUGS (8)
  1. REMINYL [Suspect]
     Route: 048
  2. REMINYL [Suspect]
     Indication: DEMENTIA
     Route: 048
  3. PRAVASTATIN [Concomitant]
  4. NEXIUM [Concomitant]
  5. DIGOXIN [Concomitant]
  6. MAGMIN [Concomitant]
  7. ACETAMINOPHEN [Concomitant]
  8. FOSAMAX [Concomitant]

REACTIONS (3)
  - ATRIAL FIBRILLATION [None]
  - LUNG INFECTION [None]
  - SEPSIS [None]
